FAERS Safety Report 17852181 (Version 1)
Quarter: 2020Q2

REPORT INFORMATION
  Report Type: Spontaneous
  Country: US (occurrence: US)
  Receive Date: 20200602
  Receipt Date: 20200602
  Transmission Date: 20200714
  Serious: Yes (Other)
  Sender: FDA-Public Use
  Company Number: US-TEVA-2020-US-1242161

PATIENT
  Age: 36 Year
  Sex: Male

DRUGS (6)
  1. BACLOFEN. [Suspect]
     Active Substance: BACLOFEN
     Indication: PAIN IN EXTREMITY
     Route: 061
  2. CLONIDINE. [Suspect]
     Active Substance: CLONIDINE
     Indication: PAIN IN EXTREMITY
     Route: 061
  3. DICLOFENAC [Suspect]
     Active Substance: DICLOFENAC
     Indication: PAIN IN EXTREMITY
     Route: 061
  4. GABAPENTIN. [Suspect]
     Active Substance: GABAPENTIN
     Indication: PAIN IN EXTREMITY
     Route: 061
  5. KETAMINE [Suspect]
     Active Substance: KETAMINE
     Indication: PAIN IN EXTREMITY
     Route: 061
  6. PRILOCAINE [Suspect]
     Active Substance: PRILOCAINE
     Indication: PAIN IN EXTREMITY
     Route: 061

REACTIONS (2)
  - Loss of consciousness [Unknown]
  - Agitation [Unknown]
